FAERS Safety Report 8306345-7 (Version None)
Quarter: 2012Q2

REPORT INFORMATION
  Report Type: 
  Country: None (occurrence: None)
  Receive Date: 20120423
  Receipt Date: 20120323
  Transmission Date: 20120825
  Serious: Yes (Other)
  Sender: FDA-Public Use
  Company Number: BE-BAXTER-2012BAX001500

PATIENT
  Sex: Female

DRUGS (4)
  1. CYCLOPHOSPHAMIDE [Suspect]
  2. ANTI-THYMOCYTE GLOBULIN NOS [Suspect]
  3. BUSULFAN [Suspect]
  4. ANTI-THYMOCYTE GLOBULIN NOS [Suspect]

REACTIONS (2)
  - MATERNAL EXPOSURE BEFORE PREGNANCY [None]
  - PREGNANCY [None]
